FAERS Safety Report 4709972-9 (Version None)
Quarter: 2005Q3

REPORT INFORMATION
  Report Type: 
  Country: None (occurrence: None)
  Receive Date: 20050706
  Receipt Date: 20050621
  Transmission Date: 20060218
  Serious: Yes (Other)
  Sender: FDA-Public Use
  Company Number: 215225

PATIENT
  Age: 47 Year
  Sex: Female
  Weight: 49 kg

DRUGS (11)
  1. RITUXAN [Suspect]
     Indication: NON-HODGKIN'S LYMPHOMA
     Dosage: 600 MG, INTRAVENOUS
     Route: 042
     Dates: start: 20011104, end: 20011127
  2. VINESINE (JAPAN) [Suspect]
     Indication: NON-HODGKIN'S LYMPHOMA
     Dosage: SEE IMAGE
     Route: 042
     Dates: start: 20011205, end: 20011205
  3. VINESINE (JAPAN) [Suspect]
     Indication: NON-HODGKIN'S LYMPHOMA
     Dosage: SEE IMAGE
     Route: 042
     Dates: start: 20011212, end: 20011212
  4. BLEOMYCIN [Suspect]
     Indication: NON-HODGKIN'S LYMPHOMA
     Dosage: 15 MG, INTRAVENOUS
     Route: 042
     Dates: start: 20011205, end: 20011205
  5. BLEOMYCIN [Suspect]
     Indication: NON-HODGKIN'S LYMPHOMA
     Dosage: 15 MG, INTRAVENOUS
     Route: 042
     Dates: start: 20011212, end: 20011212
  6. IFOSFAMIDE [Suspect]
     Indication: NON-HODGKIN'S LYMPHOMA
     Dosage: 1 G, INTRAVENOUS
     Route: 042
     Dates: start: 20011205, end: 20011207
  7. DECADRON [Concomitant]
  8. ATARAX [Concomitant]
  9. HERCEPTIN [Concomitant]
  10. PREDNISONE [Concomitant]
  11. TEPRENONE (TEPRENONE) [Concomitant]

REACTIONS (3)
  - LEUKOPENIA [None]
  - NEUTROPHIL PERCENTAGE DECREASED [None]
  - PLATELET COUNT DECREASED [None]
